FAERS Safety Report 7901671-5 (Version None)
Quarter: 2011Q4

REPORT INFORMATION
  Report Type: 
  Country: None (occurrence: None)
  Receive Date: 20111108
  Receipt Date: 20111102
  Transmission Date: 20120403
  Serious: Yes (Death, Life-Threatening, Hospitalization)
  Sender: FDA-Public Use
  Company Number: JP-JNJFOC-20110800082

PATIENT
  Sex: Female
  Weight: 46 kg

DRUGS (90)
  1. MAGMITT [Concomitant]
     Route: 048
     Dates: end: 20100116
  2. VITAMEDIN [Concomitant]
     Route: 042
     Dates: start: 20091116, end: 20091211
  3. NOVO HEPARIN [Concomitant]
     Indication: DEEP VEIN THROMBOSIS
     Route: 042
     Dates: end: 20091113
  4. SOLDEM 1 [Concomitant]
     Route: 042
     Dates: start: 20100601, end: 20100603
  5. NERIPROCT [Concomitant]
     Indication: HAEMORRHOIDS
     Route: 061
     Dates: end: 20091114
  6. HERBAL NERVE TONIC LIQUID [Concomitant]
     Route: 048
     Dates: end: 20091115
  7. ISOTONIC SODIUM CHLORIDE [Concomitant]
     Route: 042
     Dates: end: 20100706
  8. DEXAMETHASONE SODIUM PHOSPHATE [Concomitant]
     Route: 042
     Dates: start: 20091110, end: 20091110
  9. DEXAMETHASONE SODIUM PHOSPHATE [Concomitant]
     Route: 042
     Dates: start: 20100507, end: 20100507
  10. DEXAMETHASONE SODIUM PHOSPHATE [Concomitant]
     Route: 042
     Dates: start: 20091111, end: 20091111
  11. KYTRIL [Concomitant]
     Route: 042
     Dates: start: 20100106, end: 20100106
  12. CEFAZOLIN SODIUM [Concomitant]
     Indication: CONSTIPATION
     Route: 048
     Dates: start: 20091117, end: 20091120
  13. HERBAL PREPARATION [Concomitant]
     Route: 048
     Dates: start: 20091117, end: 20091118
  14. OXINORM [Concomitant]
     Route: 048
     Dates: start: 20091126, end: 20100606
  15. SOLITA-T NO.4 [Concomitant]
     Route: 042
     Dates: start: 20100213, end: 20100215
  16. CEFMETAZON [Concomitant]
     Indication: URINARY TRACT INFECTION
     Route: 042
     Dates: start: 20100530, end: 20100607
  17. MARZULENE-S [Concomitant]
     Route: 048
     Dates: start: 20100621, end: 20100627
  18. DOXORUBICIN HCL [Suspect]
     Indication: OVARIAN CANCER RECURRENT
     Route: 042
     Dates: start: 20100409, end: 20100409
  19. SOLDEM 1 [Concomitant]
     Route: 042
     Dates: start: 20100720, end: 20100725
  20. DEXTROSE [Concomitant]
     Route: 042
     Dates: start: 20100507, end: 20100507
  21. KYTRIL [Concomitant]
     Route: 042
  22. PRIMPERAN TAB [Concomitant]
     Route: 042
     Dates: start: 20091116
  23. KAKKON-TO [Concomitant]
     Route: 048
     Dates: start: 20091116, end: 20091116
  24. SODIUM BICARBONATE [Concomitant]
     Route: 049
     Dates: start: 20091123, end: 20100409
  25. DAI-KENCHU-TO [Concomitant]
     Indication: CONSTIPATION
     Route: 048
     Dates: start: 20091210, end: 20100116
  26. DAI-KENCHU-TO [Concomitant]
     Route: 048
     Dates: end: 20100722
  27. PANTHENOL [Concomitant]
     Route: 042
     Dates: start: 20100129, end: 20100129
  28. DOXORUBICIN HCL [Suspect]
     Route: 042
     Dates: start: 20100604, end: 20100604
  29. FENTANYL-100 [Concomitant]
     Route: 062
     Dates: end: 20100618
  30. SOLDEM 1 [Concomitant]
     Route: 042
  31. TPN ELECTROLYTES IN PLASTIC CONTAINER [Concomitant]
     Route: 042
     Dates: start: 20091116
  32. TPN ELECTROLYTES IN PLASTIC CONTAINER [Concomitant]
     Route: 042
     Dates: start: 20100602, end: 20100602
  33. KALIMATE [Concomitant]
     Route: 048
     Dates: start: 20091126, end: 20091206
  34. TPN [Concomitant]
     Route: 048
     Dates: start: 20100528, end: 20100704
  35. DOXORUBICIN HCL [Suspect]
     Route: 042
     Dates: start: 20091110, end: 20091110
  36. PHYSIOSOL [Concomitant]
     Route: 042
     Dates: start: 20091116, end: 20091118
  37. MAGMITT [Concomitant]
     Route: 048
     Dates: end: 20100621
  38. ARGAMATE [Concomitant]
     Indication: HYDRONEPHROSIS
     Route: 048
     Dates: end: 20091123
  39. ISOTONIC SODIUM CHLORIDE [Concomitant]
     Route: 042
  40. WARFARIN SODIUM [Concomitant]
     Indication: DEEP VEIN THROMBOSIS
     Route: 048
     Dates: start: 20091112, end: 20091130
  41. MAC-AMIN [Concomitant]
     Route: 042
     Dates: start: 20091116
  42. FUNGIZONE [Concomitant]
     Route: 042
     Dates: start: 20091116, end: 20091119
  43. LECICARBON [Concomitant]
     Indication: CONSTIPATION
     Route: 054
     Dates: start: 20100106, end: 20100116
  44. ASPIRIN [Concomitant]
     Indication: DEEP VEIN THROMBOSIS
     Route: 048
     Dates: start: 20091210, end: 20100622
  45. AZUNOL ST [Concomitant]
     Route: 048
     Dates: start: 20100507, end: 20100610
  46. KENALOG [Concomitant]
     Route: 049
     Dates: start: 20100508, end: 20100508
  47. POTASSIUM CHLORIDE [Concomitant]
     Indication: INTESTINAL OBSTRUCTION
     Route: 042
     Dates: start: 20100529, end: 20100601
  48. CEFMETAZON [Concomitant]
     Route: 042
     Dates: start: 20100702, end: 20100706
  49. DOXORUBICIN HCL [Suspect]
     Route: 042
     Dates: start: 20100312, end: 20100312
  50. DOXORUBICIN HCL [Suspect]
     Route: 042
     Dates: start: 20100212, end: 20100212
  51. DOXORUBICIN HCL [Suspect]
     Route: 042
     Dates: start: 20100106, end: 20100106
  52. MAGMITT [Concomitant]
     Indication: CONSTIPATION
     Route: 048
  53. SOLDEM 1 [Concomitant]
     Route: 042
     Dates: start: 20100130, end: 20100130
  54. ISOTONIC SODIUM CHLORIDE [Concomitant]
     Route: 042
     Dates: start: 20100106, end: 20100106
  55. ISOTONIC SODIUM CHLORIDE [Concomitant]
     Route: 042
     Dates: start: 20100106, end: 20100106
  56. TPN ELECTROLYTES IN PLASTIC CONTAINER [Concomitant]
     Route: 042
     Dates: end: 20100714
  57. SODIUM CHLORIDE [Concomitant]
     Route: 042
     Dates: start: 20091117, end: 20091117
  58. NAPROXEN [Concomitant]
     Route: 048
     Dates: start: 20091122, end: 20100116
  59. CINAL [Concomitant]
     Route: 048
     Dates: end: 20100116
  60. ASPIRIN [Concomitant]
     Route: 048
     Dates: start: 20100106, end: 20100116
  61. ATARAX [Concomitant]
     Route: 042
     Dates: start: 20100129, end: 20100129
  62. SOLITA-T NO.4 [Concomitant]
     Route: 042
     Dates: start: 20100129, end: 20100129
  63. FERROUS CITRATE [Concomitant]
     Route: 048
     Dates: start: 20100106, end: 20100116
  64. SENNOSIDE [Concomitant]
     Route: 048
     Dates: end: 20100722
  65. SOLDEM 1 [Concomitant]
     Route: 042
     Dates: start: 20100706, end: 20100729
  66. ISOTONIC SODIUM CHLORIDE [Concomitant]
     Route: 042
     Dates: start: 20100507, end: 20100507
  67. DEXTROSE [Concomitant]
     Route: 042
     Dates: start: 20091110, end: 20091110
  68. KYTRIL [Concomitant]
     Route: 042
     Dates: start: 20100507, end: 20100507
  69. PRIMPERAN TAB [Concomitant]
     Route: 042
     Dates: start: 20100129, end: 20100129
  70. CINAL [Concomitant]
     Route: 048
     Dates: start: 20091218
  71. ZOLPIDEM [Concomitant]
     Route: 048
     Dates: start: 20100507, end: 20100605
  72. DOXORUBICIN HCL [Suspect]
     Route: 042
     Dates: start: 20100507, end: 20100507
  73. DOXORUBICIN HCL [Suspect]
     Route: 042
     Dates: start: 20091209, end: 20091209
  74. SENNOSIDE [Concomitant]
     Indication: CONSTIPATION
     Route: 048
     Dates: start: 20091027, end: 20100116
  75. SENNOSIDE [Concomitant]
     Route: 048
     Dates: end: 20100616
  76. ISOTONIC SODIUM CHLORIDE [Concomitant]
     Route: 042
     Dates: start: 20100507, end: 20100507
  77. DEXTROSE [Concomitant]
     Route: 042
     Dates: start: 20100106, end: 20100106
  78. TPN ELECTROLYTES IN PLASTIC CONTAINER [Concomitant]
     Route: 042
     Dates: start: 20100706, end: 20100728
  79. TPN ELECTROLYTES IN PLASTIC CONTAINER [Concomitant]
     Route: 042
     Dates: start: 20100529, end: 20100601
  80. ASPIRIN [Concomitant]
     Route: 048
     Dates: end: 20100722
  81. SOLITA-T NO.4 [Concomitant]
     Route: 042
     Dates: start: 20100130, end: 20100212
  82. PANTHENOL [Concomitant]
     Route: 042
     Dates: end: 20100714
  83. FENTANYL-100 [Concomitant]
     Route: 062
     Dates: start: 20100703, end: 20100729
  84. SOLDEM 1 [Concomitant]
     Route: 042
     Dates: start: 20100129, end: 20100129
  85. DEXAMETHASONE SODIUM PHOSPHATE [Concomitant]
     Route: 042
     Dates: start: 20100106, end: 20100106
  86. MEROPENEM [Concomitant]
     Route: 042
     Dates: start: 20091116, end: 20091116
  87. MEROPENEM [Concomitant]
     Route: 042
     Dates: start: 20091117, end: 20091124
  88. EPHEDRA TEAS [Concomitant]
     Route: 048
     Dates: start: 20091218, end: 20100112
  89. RINDERON-VG [Concomitant]
     Route: 061
     Dates: start: 20100106, end: 20100106
  90. PENTAZOCINE LACTATE [Concomitant]
     Route: 042
     Dates: start: 20100129, end: 20100129

REACTIONS (6)
  - INTESTINAL OBSTRUCTION [None]
  - FEMALE GENITAL TRACT FISTULA [None]
  - ANAEMIA [None]
  - SEPSIS [None]
  - OVARIAN CANCER RECURRENT [None]
  - URINARY TRACT INFECTION [None]
